FAERS Safety Report 25825536 (Version 1)
Quarter: 2025Q3

REPORT INFORMATION
  Report Type: Spontaneous
  Country: GB (occurrence: GB)
  Receive Date: 20250919
  Receipt Date: 20250919
  Transmission Date: 20251020
  Serious: Yes (Other)
  Sender: MYLAN
  Company Number: EU-SCHWABE-2025031805

PATIENT
  Age: 30 Year
  Sex: Male

DRUGS (8)
  1. CITALOPRAM [Interacting]
     Active Substance: CITALOPRAM
     Indication: Product used for unknown indication
     Dosage: 40 MILLIGRAM,QD (WITH NO PRIOR ISSUES)
  2. CITALOPRAM [Interacting]
     Active Substance: CITALOPRAM
     Dosage: 40 MILLIGRAM,QD (WITH NO PRIOR ISSUES)
     Route: 065
  3. CITALOPRAM [Interacting]
     Active Substance: CITALOPRAM
     Dosage: 40 MILLIGRAM,QD (WITH NO PRIOR ISSUES)
     Route: 065
  4. CITALOPRAM [Interacting]
     Active Substance: CITALOPRAM
     Dosage: 40 MILLIGRAM,QD (WITH NO PRIOR ISSUES)
  5. Kalms lavender [Concomitant]
     Indication: Sleep disorder
     Dosage: 160 MILLIGRAM, QD (160 MG (2 ? 80 MG) LAST NIGHT)
  6. Kalms lavender [Concomitant]
     Dosage: 160 MILLIGRAM, QD (160 MG (2 ? 80 MG) LAST NIGHT)
     Route: 048
  7. Kalms lavender [Concomitant]
     Dosage: 160 MILLIGRAM, QD (160 MG (2 ? 80 MG) LAST NIGHT)
     Route: 048
  8. Kalms lavender [Concomitant]
     Dosage: 160 MILLIGRAM, QD (160 MG (2 ? 80 MG) LAST NIGHT)

REACTIONS (2)
  - Mania [Unknown]
  - Drug interaction [Unknown]
